FAERS Safety Report 6035464-3 (Version None)
Quarter: 2009Q1

REPORT INFORMATION
  Report Type: 
  Country: None (occurrence: None)
  Receive Date: 20090112
  Receipt Date: 20090112
  Transmission Date: 20090719
  Serious: Yes (Other)
  Sender: FDA-Public Use
  Company Number: None

PATIENT
  Sex: Male
  Weight: 95.709 kg

DRUGS (1)
  1. CLONAZEPAM [Suspect]
     Indication: INSOMNIA
     Dosage: 1MG 1 QD PO
     Route: 048

REACTIONS (2)
  - BLOOD GLUCOSE INCREASED [None]
  - PRODUCT QUALITY ISSUE [None]
